FAERS Safety Report 15352390 (Version 1)
Quarter: 2018Q3

REPORT INFORMATION
  Report Type: Spontaneous
  Country: US (occurrence: US)
  Receive Date: 20180905
  Receipt Date: 20180905
  Transmission Date: 20181010
  Serious: No
  Sender: FDA-Public Use
  Company Number: US-VIFOR (INTERNATIONAL) INC.-VIT-2018-08755

PATIENT
  Sex: Female

DRUGS (12)
  1. VELTASSA [Suspect]
     Active Substance: PATIROMER
     Indication: HYPERKALAEMIA
     Route: 048
     Dates: start: 20160422
  2. LAMIVUDINE. [Concomitant]
     Active Substance: LAMIVUDINE
  3. IMITREX [Concomitant]
     Active Substance: SUMATRIPTAN SUCCINATE
  4. VIREAD [Concomitant]
     Active Substance: TENOFOVIR DISOPROXIL FUMARATE
  5. ASPIRIN. [Concomitant]
     Active Substance: ASPIRIN
  6. ADVAIR HFA [Concomitant]
     Active Substance: FLUTICASONE PROPIONATE\SALMETEROL XINAFOATE
  7. CALCIUM ACETATE. [Concomitant]
     Active Substance: CALCIUM ACETATE
  8. ATORVASTATIN CALCIUM. [Concomitant]
     Active Substance: ATORVASTATIN CALCIUM
  9. SPIRIVA [Concomitant]
     Active Substance: TIOTROPIUM BROMIDE MONOHYDRATE
  10. LEVOTHYROXINE SODIUM. [Concomitant]
     Active Substance: LEVOTHYROXINE SODIUM
  11. OMEPRAZOLE. [Concomitant]
     Active Substance: OMEPRAZOLE
  12. KALETRA [Concomitant]
     Active Substance: LOPINAVIR\RITONAVIR

REACTIONS (1)
  - Vocal cord disorder [Unknown]
